FAERS Safety Report 6598074-5 (Version None)
Quarter: 2010Q1

REPORT INFORMATION
  Report Type: 
  Country: None (occurrence: None)
  Receive Date: 20100216
  Receipt Date: 20100129
  Transmission Date: 20100710
  Serious: Yes (Death, Hospitalization)
  Sender: FDA-Public Use
  Company Number: 20100200009

PATIENT
  Age: 75 Year
  Sex: Male

DRUGS (10)
  1. TORSEMIDE [Suspect]
     Dosage: 10 MG (10 MG, 1 IN 1 D), ORAL
     Route: 048
     Dates: start: 20080601
  2. METHOXY POLYETHYLENE GLYCOL-EPOETIN BETA (METHOXY POLYETHYLENE  GLYCOL [Suspect]
     Indication: NEPHROGENIC ANAEMIA
     Dosage: (50 MCG, 1 IN 1 M), SUBCUTANOEUS
     Route: 058
     Dates: start: 20081101
  3. SULFAMETHOXAZOLE AND TRIMETHOPRIM [Suspect]
     Dosage: (1 DOSAGE FORMS, 3 IN 1 WK), ORAL
     Route: 048
     Dates: start: 20080601
  4. METOPROLOL TARTRATE [Concomitant]
  5. AVELOX [Concomitant]
  6. ASPIRIN [Concomitant]
  7. PREDNISONE TAB [Concomitant]
  8. NOVOMIX (INSULIN ASPART, PROTAMINE INSULIN ASPART) [Concomitant]
  9. IMUREK (AZATHIOPRINE) [Concomitant]
  10. PANTOPRAZOLE SODIUM [Concomitant]

REACTIONS (2)
  - PNEUMONIA [None]
  - PULMONARY EMBOLISM [None]
